FAERS Safety Report 7950632-9 (Version None)
Quarter: 2011Q4

REPORT INFORMATION
  Report Type: 
  Country: None (occurrence: None)
  Receive Date: 20111130
  Receipt Date: 20111129
  Transmission Date: 20120403
  Serious: Yes (Other)
  Sender: FDA-Public Use
  Company Number: US-ROCHE-791292

PATIENT
  Sex: Male
  Weight: 152.09 kg

DRUGS (1)
  1. ACCUTANE [Suspect]
     Indication: HIDRADENITIS
     Route: 065
     Dates: start: 19970619, end: 19980101

REACTIONS (5)
  - COLONIC POLYP [None]
  - INFLAMMATORY BOWEL DISEASE [None]
  - CROHN'S DISEASE [None]
  - INTESTINAL HAEMORRHAGE [None]
  - INTESTINAL OBSTRUCTION [None]
